FAERS Safety Report 19741933 (Version 2)
Quarter: 2022Q1

REPORT INFORMATION
  Report Type: Report from Study
  Country: US (occurrence: US)
  Receive Date: 20210824
  Receipt Date: 20220317
  Transmission Date: 20220423
  Serious: Yes (Death, Life-Threatening, Hospitalization)
  Sender: FDA-Public Use
  Company Number: US-ABBVIE-21P-163-4014785-00

PATIENT
  Age: 66 Year
  Sex: Female
  Weight: 72.4 kg

DRUGS (12)
  1. IBRUTINIB [Suspect]
     Active Substance: IBRUTINIB
     Indication: Chronic lymphocytic leukaemia
     Route: 048
     Dates: start: 20210407, end: 20210703
  2. VENETOCLAX [Suspect]
     Active Substance: VENETOCLAX
     Indication: Chronic lymphocytic leukaemia
     Dosage: DAYS 1-7 CYCLE 3
     Route: 048
     Dates: start: 20210407
  3. VENETOCLAX [Suspect]
     Active Substance: VENETOCLAX
     Dosage: DAYS 8-14, CYCLE 3
     Route: 048
  4. VENETOCLAX [Suspect]
     Active Substance: VENETOCLAX
     Dosage: DAYS 15-21, CYCLE 3
     Route: 048
  5. VENETOCLAX [Suspect]
     Active Substance: VENETOCLAX
     Dosage: DAYS 22-28, CYCLE 3
     Route: 048
  6. VENETOCLAX [Suspect]
     Active Substance: VENETOCLAX
     Dosage: DAYS 8-14, CYCLE 3
     Route: 048
     Dates: end: 20210704
  7. OBINUTUZUMAB [Concomitant]
     Active Substance: OBINUTUZUMAB
     Indication: Chronic lymphocytic leukaemia
     Dosage: DAY 1, CYCLE 1
     Route: 042
     Dates: start: 20210630
  8. OBINUTUZUMAB [Concomitant]
     Active Substance: OBINUTUZUMAB
     Dosage: DAY 2, CYCLE 1
     Route: 042
  9. OBINUTUZUMAB [Concomitant]
     Active Substance: OBINUTUZUMAB
     Dosage: DAY 8, CYCLE 1
     Route: 042
  10. OBINUTUZUMAB [Concomitant]
     Active Substance: OBINUTUZUMAB
     Dosage: DAY 15, CYCLE 1
     Route: 042
  11. OBINUTUZUMAB [Concomitant]
     Active Substance: OBINUTUZUMAB
     Dosage: DAY 1, CYCLE 2-6
     Route: 042
  12. DECADRON [Concomitant]
     Active Substance: DEXAMETHASONE
     Indication: Product used for unknown indication

REACTIONS (2)
  - Fungal abscess central nervous system [Fatal]
  - Haemorrhage intracranial [Recovered/Resolved]

NARRATIVE: CASE EVENT DATE: 20210704
